FAERS Safety Report 13994150 (Version 1)
Quarter: 2017Q3

REPORT INFORMATION
  Report Type: Not Available
  Country: US (occurrence: US)
  Receive Date: 20170920
  Receipt Date: 20170920
  Transmission Date: 20171128
  Serious: No
  Sender: FDA-Public Use
  Company Number: US-NEUROCRINE BIOSCIENCES INC.-2017NBI00544

PATIENT
  Age: 67 Year
  Sex: Female

DRUGS (7)
  1. ASPIRIN. [Concomitant]
     Active Substance: ASPIRIN
  2. BENZOTROPINE [Concomitant]
     Active Substance: BENZTROPINE
  3. VITAMIN D [Concomitant]
     Active Substance: CHOLECALCIFEROL
  4. INGREZZA [Suspect]
     Active Substance: VALBENAZINE
     Route: 048
     Dates: start: 20170706, end: 20170710
  5. HALOPERIDOL. [Concomitant]
     Active Substance: HALOPERIDOL
  6. NIFEDIPINE. [Concomitant]
     Active Substance: NIFEDIPINE
  7. INGREZZA [Suspect]
     Active Substance: VALBENAZINE
     Indication: PRODUCT USED FOR UNKNOWN INDICATION
     Route: 048
     Dates: end: 20170705

REACTIONS (3)
  - Tremor [Unknown]
  - Confusional state [Unknown]
  - Loss of personal independence in daily activities [Unknown]
